FAERS Safety Report 8108940-7 (Version None)
Quarter: 2012Q1

REPORT INFORMATION
  Report Type: 
  Country: None (occurrence: None)
  Receive Date: 20120202
  Receipt Date: 20111104
  Transmission Date: 20120608
  Serious: Yes (Other)
  Sender: FDA-Public Use
  Company Number: DE-GLAXOSMITHKLINE-D0073269A

PATIENT
  Sex: Male

DRUGS (4)
  1. SIMVASTATIN [Concomitant]
     Dosage: 30MG PER DAY
     Route: 065
  2. TAMSULOSIN HCL [Concomitant]
     Dosage: .4MG IN THE MORNING
     Route: 065
     Dates: start: 20090401
  3. AVODART [Suspect]
     Route: 048
     Dates: start: 20090101
  4. LISINOPRIL [Concomitant]
     Dosage: 5MG PER DAY
     Route: 065

REACTIONS (6)
  - PROSTATIC SPECIFIC ANTIGEN ABNORMAL [None]
  - NEOPLASM PROSTATE [None]
  - DIZZINESS [None]
  - LIBIDO DISORDER [None]
  - ERECTILE DYSFUNCTION [None]
  - PAINFUL ERECTION [None]
